FAERS Safety Report 4536669-0 (Version None)
Quarter: 2004Q4

REPORT INFORMATION
  Report Type: 
  Country: None (occurrence: None)
  Receive Date: 20041220
  Receipt Date: 20041203
  Transmission Date: 20050328
  Serious: Yes (Hospitalization)
  Sender: FDA-Public Use
  Company Number: 167591

PATIENT
  Age: 47 Year
  Sex: Female
  Weight: 113.3993 kg

DRUGS (11)
  1. AVONEX [Suspect]
     Indication: MULTIPLE SCLEROSIS
     Dosage: 30 UG; QW; IM
     Route: 030
     Dates: start: 20020701
  2. VIOXX [Concomitant]
  3. ZOLOFT [Concomitant]
  4. ZOCOR [Concomitant]
  5. DILTIAZEM [Concomitant]
  6. PRILOSEC [Concomitant]
  7. ASPIRIN [Concomitant]
  8. ALEVE [Concomitant]
  9. NORVASC [Concomitant]
  10. HYDROCHLOROTHIAZIDE [Concomitant]
  11. AMBIEN [Concomitant]

REACTIONS (12)
  - BACK PAIN [None]
  - BLOOD CHOLESTEROL INCREASED [None]
  - CONDITION AGGRAVATED [None]
  - HYPERTENSION [None]
  - HYPOKINESIA [None]
  - INJECTION SITE HAEMORRHAGE [None]
  - INSOMNIA [None]
  - LOWER LIMB FRACTURE [None]
  - MENSTRUATION IRREGULAR [None]
  - OSTEOARTHRITIS [None]
  - PAIN IN EXTREMITY [None]
  - ROAD TRAFFIC ACCIDENT [None]
